FAERS Safety Report 18342915 (Version 3)
Quarter: 2021Q4

REPORT INFORMATION
  Report Type: Spontaneous
  Country: US (occurrence: US)
  Receive Date: 20201005
  Receipt Date: 20211022
  Transmission Date: 20220304
  Serious: Yes (Hospitalization, Other)
  Sender: FDA-Public Use
  Company Number: 2020SF27421

PATIENT
  Age: 15580 Day
  Sex: Male
  Weight: 129.3 kg

DRUGS (41)
  1. XIGDUO XR [Suspect]
     Active Substance: DAPAGLIFLOZIN PROPANEDIOL\METFORMIN HYDROCHLORIDE
     Indication: Type 2 diabetes mellitus
     Route: 048
     Dates: start: 20160216, end: 20160503
  2. XIGDUO XR [Suspect]
     Active Substance: DAPAGLIFLOZIN PROPANEDIOL\METFORMIN HYDROCHLORIDE
     Indication: Weight decreased
     Route: 048
     Dates: start: 20160216, end: 20160503
  3. XIGDUO XR [Suspect]
     Active Substance: DAPAGLIFLOZIN PROPANEDIOL\METFORMIN HYDROCHLORIDE
     Indication: Blood pressure decreased
     Route: 048
     Dates: start: 20160216, end: 20160503
  4. PRAVACHOL [Concomitant]
     Active Substance: PRAVASTATIN SODIUM
  5. MAXZIDE [Concomitant]
     Active Substance: HYDROCHLOROTHIAZIDE\TRIAMTERENE
  6. COREG [Concomitant]
     Active Substance: CARVEDILOL
  7. LISINOPRIL [Concomitant]
     Active Substance: LISINOPRIL
  8. PRILOSEC [Concomitant]
     Active Substance: OMEPRAZOLE MAGNESIUM
  9. ZOLOFT [Concomitant]
     Active Substance: SERTRALINE HYDROCHLORIDE
  10. GLUCOPHAGE [Concomitant]
     Active Substance: METFORMIN HYDROCHLORIDE
  11. ASPIRIN [Concomitant]
     Active Substance: ASPIRIN
  12. NITROSTAT [Concomitant]
     Active Substance: NITROGLYCERIN
  13. HYDRALAZINE [Concomitant]
     Active Substance: HYDRALAZINE HYDROCHLORIDE
  14. ACETAMINOPHEN [Concomitant]
     Active Substance: ACETAMINOPHEN
  15. VANCOMYCIN [Concomitant]
     Active Substance: VANCOMYCIN
  16. PROTONIX [Concomitant]
     Active Substance: PANTOPRAZOLE SODIUM
  17. DULCOLAX NOS [Concomitant]
     Active Substance: BISACODYL OR DOCUSATE SODIUM
  18. AMBIEN [Concomitant]
     Active Substance: ZOLPIDEM TARTRATE
  19. ZOSYN [Concomitant]
     Active Substance: PIPERACILLIN SODIUM\TAZOBACTAM SODIUM
  20. VITAMINS [Concomitant]
     Active Substance: VITAMINS
  21. TRULICITY [Concomitant]
     Active Substance: DULAGLUTIDE
  22. GLUCOTROL [Concomitant]
     Active Substance: GLIPIZIDE
  23. AZITHROMYCIN ANHYDROUS [Concomitant]
     Active Substance: AZITHROMYCIN ANHYDROUS
  24. MUCINEX [Concomitant]
     Active Substance: GUAIFENESIN
  25. HEPARIN [Concomitant]
     Active Substance: HEPARIN SODIUM
  26. FOLATE SODIUM [Concomitant]
     Active Substance: FOLATE SODIUM
  27. WESTCORT [Concomitant]
     Active Substance: HYDROCORTISONE VALERATE
  28. VITAMIN D [Concomitant]
     Active Substance: VITAMIN D NOS
  29. ACETIC ACID\TRIAMCINOLONE [Concomitant]
     Active Substance: ACETIC ACID\TRIAMCINOLONE
  30. LOTRISONE [Concomitant]
     Active Substance: BETAMETHASONE DIPROPIONATE\CLOTRIMAZOLE
  31. NYSTATIN/NEOMYCIN/POLYMYXIN B [Concomitant]
  32. LEXAPRO [Concomitant]
     Active Substance: ESCITALOPRAM OXALATE
  33. METFORMIN [Concomitant]
     Active Substance: METFORMIN HYDROCHLORIDE
  34. CITALOPRAM [Concomitant]
     Active Substance: CITALOPRAM HYDROBROMIDE
  35. CYCLOBENZAPRINE [Concomitant]
     Active Substance: CYCLOBENZAPRINE
  36. ALPRAZOLAM [Concomitant]
     Active Substance: ALPRAZOLAM
  37. ROPINIROLE HYDROCHLORIDE [Concomitant]
     Active Substance: ROPINIROLE HYDROCHLORIDE
  38. NABUMETONE [Concomitant]
     Active Substance: NABUMETONE
     Dates: start: 20190617
  39. SILDENAFIL [Concomitant]
     Active Substance: SILDENAFIL
     Dates: start: 20180814
  40. PREDNISONE [Concomitant]
     Active Substance: PREDNISONE
     Dates: start: 20190617
  41. MELOXICAM [Concomitant]
     Active Substance: MELOXICAM
     Dates: start: 20190218

REACTIONS (8)
  - Necrotising fasciitis [Unknown]
  - Perineal abscess [Unknown]
  - Groin abscess [Unknown]
  - Abscess limb [Unknown]
  - Cellulitis [Unknown]
  - Perineal cellulitis [Unknown]
  - Fournier^s gangrene [Unknown]
  - Sepsis [Unknown]

NARRATIVE: CASE EVENT DATE: 20160503
